FAERS Safety Report 9384943 (Version 1)
Quarter: 2013Q3

REPORT INFORMATION
  Report Type: Spontaneous
  Country: US (occurrence: US)
  Receive Date: 20130705
  Receipt Date: 20130705
  Transmission Date: 20140515
  Serious: No
  Sender: FDA-Public Use
  Company Number: US-GLAXOSMITHKLINE-A1015641A

PATIENT
  Age: 44 Year
  Sex: Female

DRUGS (7)
  1. BENLYSTA [Suspect]
     Indication: SYSTEMIC LUPUS ERYTHEMATOSUS
     Route: 042
     Dates: start: 201205
  2. ZITHROMAX [Suspect]
     Indication: PRODUCT USED FOR UNKNOWN INDICATION
  3. AUGMENTIN [Suspect]
     Indication: SINUSITIS
  4. SYNTHROID [Concomitant]
  5. LISINOPRIL [Concomitant]
  6. LOESTRIN [Concomitant]
  7. B12 [Concomitant]

REACTIONS (9)
  - Drug hypersensitivity [Not Recovered/Not Resolved]
  - Bronchitis [Recovered/Resolved]
  - Sinusitis [Recovered/Resolved]
  - Ear infection [Not Recovered/Not Resolved]
  - Diarrhoea [Unknown]
  - Chills [Unknown]
  - Rash erythematous [Unknown]
  - Feeling hot [Unknown]
  - Drug interaction [Unknown]
